FAERS Safety Report 5725836-6 (Version None)
Quarter: 2008Q2

REPORT INFORMATION
  Report Type: 
  Country: None (occurrence: None)
  Receive Date: 20080429
  Receipt Date: 20080410
  Transmission Date: 20081010
  Serious: No
  Sender: FDA-Public Use
  Company Number: 002#2#2008-00233

PATIENT
  Age: 65 Year
  Sex: Male
  Weight: 68.0396 kg

DRUGS (3)
  1. NEUPRO [Suspect]
     Indication: PARKINSON'S DISEASE
     Dosage: 6MG/24H, 2 IN 1 D,TRANSDERMAL
     Route: 062
  2. SINEMET [Concomitant]
  3. STALEVO 100 [Concomitant]

REACTIONS (3)
  - ENERGY INCREASED [None]
  - SLUGGISHNESS [None]
  - UNEVALUABLE EVENT [None]
